FAERS Safety Report 12762074 (Version 4)
Quarter: 2016Q4

REPORT INFORMATION
  Report Type: Spontaneous
  Country: US (occurrence: US)
  Receive Date: 20160920
  Receipt Date: 20161228
  Transmission Date: 20170207
  Serious: No
  Sender: FDA-Public Use
  Company Number: US-009507513-1609USA006213

PATIENT
  Age: 43 Year
  Sex: Female
  Weight: 115.65 kg

DRUGS (6)
  1. GANIRELIX ACETATE INJECTION [Suspect]
     Active Substance: GANIRELIX ACETATE
     Indication: IN VITRO FERTILISATION
     Dosage: 250 MICROGRAM, QD
     Route: 058
     Dates: start: 20160803, end: 20160808
  2. PRILOSEC [Concomitant]
     Active Substance: OMEPRAZOLE MAGNESIUM
     Indication: GASTROOESOPHAGEAL REFLUX DISEASE
     Dosage: UNK
  3. PRILOSEC [Concomitant]
     Active Substance: OMEPRAZOLE MAGNESIUM
     Indication: CHOLELITHIASIS
  4. DOXYCYCLINE. [Concomitant]
     Active Substance: DOXYCYCLINE
     Dosage: UNK
  5. FOLLISTIM [Suspect]
     Active Substance: FOLLITROPIN
     Indication: IN VITRO FERTILISATION
     Dosage: 450 IU TO 75 IU, QD
     Dates: start: 20160730, end: 20160808
  6. LEUPROLIDE [Concomitant]
     Active Substance: LEUPROLIDE
     Dosage: UNK

REACTIONS (5)
  - Constipation [Unknown]
  - Flatulence [Unknown]
  - Abdominal distension [Unknown]
  - Abdominal pain upper [Unknown]
  - Diarrhoea [Unknown]

NARRATIVE: CASE EVENT DATE: 20160809
